FAERS Safety Report 11132612 (Version 1)
Quarter: 2015Q2

REPORT INFORMATION
  Report Type: Spontaneous
  Country: MX (occurrence: MX)
  Receive Date: 20150522
  Receipt Date: 20150522
  Transmission Date: 20150821
  Serious: Yes (Death)
  Sender: FDA-Public Use
  Company Number: MX-UCBSA-2015016582

PATIENT
  Age: 18 Year
  Sex: Male
  Weight: 50 kg

DRUGS (3)
  1. FENOBARBITAL [Concomitant]
     Active Substance: PHENOBARBITAL
     Indication: PRODUCT USED FOR UNKNOWN INDICATION
     Dosage: UNK
  2. DEPAKENE [Concomitant]
     Active Substance: VALPROIC ACID
     Indication: PRODUCT USED FOR UNKNOWN INDICATION
     Dosage: UNK
  3. VIMPAT [Suspect]
     Active Substance: LACOSAMIDE
     Indication: EPILEPSY
     Dosage: 200 MG, ONCE DAILY (QD)
     Route: 048
     Dates: start: 20140301, end: 20150410

REACTIONS (2)
  - Decreased appetite [Unknown]
  - Lung infection [Fatal]

NARRATIVE: CASE EVENT DATE: 20150501
